FAERS Safety Report 6571985-2 (Version None)
Quarter: 2010Q1

REPORT INFORMATION
  Report Type: 
  Country: None (occurrence: None)
  Receive Date: 20100205
  Receipt Date: 20100125
  Transmission Date: 20100710
  Serious: Yes (Other)
  Sender: FDA-Public Use
  Company Number: US-ELI_LILLY_AND_COMPANY-US200909002402

PATIENT
  Sex: Female

DRUGS (2)
  1. CYMBALTA [Suspect]
     Indication: DIABETIC NEUROPATHY
     Dosage: 30 MG, UNK
  2. CYMBALTA [Suspect]
     Dosage: 60 MG, DAILY (1/D)
     Dates: end: 20090901

REACTIONS (1)
  - HEPATIC STEATOSIS [None]
